FAERS Safety Report 20049926 (Version 1)
Quarter: 2021Q4

REPORT INFORMATION
  Report Type: Report from Study
  Country: ES (occurrence: ES)
  Receive Date: 20211109
  Receipt Date: 20211109
  Transmission Date: 20220303
  Serious: Yes (Hospitalization)
  Sender: FDA-Public Use
  Company Number: ES-SAOL THERAPEUTICS-2021SAO00373

PATIENT
  Sex: Male

DRUGS (3)
  1. LIORESAL [Suspect]
     Active Substance: BACLOFEN
     Dosage: 200.14116 ???G, \DAY
     Route: 037
     Dates: start: 20210506, end: 20210615
  2. LIORESAL [Suspect]
     Active Substance: BACLOFEN
     Dosage: 150.10587 ???G, \DAY
     Route: 037
     Dates: start: 20210615, end: 2021
  3. LIORESAL [Suspect]
     Active Substance: BACLOFEN
     Dosage: 100.07058 ???G, \DAY
     Route: 037
     Dates: start: 2021, end: 20210706

REACTIONS (5)
  - Implant site erosion [Recovered/Resolved]
  - Implant site infection [Recovered/Resolved]
  - Proteus test positive [Recovered/Resolved]
  - Pseudomonas test positive [Recovered/Resolved]
  - Device dislocation [Recovered/Resolved]

NARRATIVE: CASE EVENT DATE: 20210615
